FAERS Safety Report 8816350 (Version 1)
Quarter: 2012Q4

REPORT INFORMATION
  Report Type: Spontaneous
  Country: US (occurrence: None)
  Receive Date: 20120927
  Receipt Date: 20120927
  Transmission Date: 20130627
  Serious: Yes (Other)
  Sender: FDA-Public Use
  Company Number: None

PATIENT
  Age: 73 Year
  Weight: 90.27 kg

DRUGS (2)
  1. ATORVASTATIN 20MG [Suspect]
     Indication: HYPERCHOLESTEROLEMIA
     Route: 048
     Dates: start: 201207
  2. ATORVASTATIN 20MG [Suspect]
     Indication: HYPERCHOLESTEROLEMIA
     Dates: start: 201209

REACTIONS (2)
  - Muscle spasms [None]
  - Product substitution issue [None]
